FAERS Safety Report 6439965-5 (Version None)
Quarter: 2009Q4

REPORT INFORMATION
  Report Type: 
  Country: None (occurrence: None)
  Receive Date: 20091113
  Receipt Date: 20091106
  Transmission Date: 20100525
  Serious: Yes (Other)
  Sender: FDA-Public Use
  Company Number: GB-PFIZER INC-2009242705

PATIENT
  Sex: Female

DRUGS (1)
  1. PROVERA [Suspect]
     Indication: LYMPHANGIOLEIOMYOMATOSIS
     Dosage: 600 MG, 1X/DAY
     Route: 048
     Dates: start: 20051201

REACTIONS (5)
  - CONJUNCTIVAL OEDEMA [None]
  - DRY EYE [None]
  - EYE PAIN [None]
  - OCULAR HYPERAEMIA [None]
  - VISION BLURRED [None]
